FAERS Safety Report 9614594 (Version 2)
Quarter: 2013Q4

REPORT INFORMATION
  Report Type: Report from Study
  Country: GB (occurrence: GB)
  Receive Date: 20131011
  Receipt Date: 20131011
  Transmission Date: 20140711
  Serious: Yes (Hospitalization)
  Sender: FDA-Public Use
  Company Number: GB-ASTRAZENECA-2013SE67586

PATIENT
  Age: 81 Year
  Sex: Male
  Weight: 72 kg

DRUGS (6)
  1. NEXIUM [Suspect]
     Indication: BARRETT^S OESOPHAGUS
     Route: 048
     Dates: start: 20080805, end: 20130828
  2. NICORANDIL [Concomitant]
     Indication: ANGINA PECTORIS
     Route: 048
     Dates: start: 2005, end: 20130828
  3. BISOPROLOL [Concomitant]
     Indication: HYPERTENSION
     Route: 048
     Dates: end: 20130828
  4. ATORVASTATIN [Concomitant]
     Indication: BLOOD CHOLESTEROL INCREASED
     Route: 048
     Dates: end: 20130828
  5. CO-TRIMOXAZOLE [Concomitant]
     Indication: PULMONARY FIBROSIS
     Dosage: EVERY 12 HOURS
     Route: 048
     Dates: start: 20120817, end: 20130828
  6. ACETYLCYSTEIN [Concomitant]
     Indication: PULMONARY FIBROSIS
     Route: 048
     Dates: start: 20121029, end: 20130727

REACTIONS (1)
  - Benign prostatic hyperplasia [Recovered/Resolved]
